FAERS Safety Report 7424302-X (Version None)
Quarter: 2011Q2

REPORT INFORMATION
  Report Type: 
  Country: None (occurrence: None)
  Receive Date: 20110405
  Receipt Date: 20110322
  Transmission Date: 20111010
  Serious: No
  Sender: FDA-Public Use
  Company Number: US-145130

PATIENT
  Sex: Female
  Weight: 75 kg

DRUGS (5)
  1. PLAQUENIL [Concomitant]
  2. BENADRYL [Concomitant]
  3. CELLCEPT [Concomitant]
  4. WINRHO SDF LIQUID [Suspect]
     Indication: THROMBOCYTOPENIA
     Dosage: (80 ?G/KG QD INTRAVENOUS (NOT OTHERWISE SPECIFIED))
     Route: 042
     Dates: start: 20101124, end: 20101124
  5. SOLU-MEDROL [Concomitant]

REACTIONS (2)
  - INTRAVASCULAR HAEMOLYSIS [None]
  - OVERDOSE [None]
